FAERS Safety Report 9116513 (Version 3)
Quarter: 2013Q1

REPORT INFORMATION
  Report Type: Report from Study
  Country: FR (occurrence: FR)
  Receive Date: 20130225
  Receipt Date: 20130318
  Transmission Date: 20140127
  Serious: Yes (Hospitalization, Other)
  Sender: FDA-Public Use
  Company Number: PHHO2013FR002795

PATIENT
  Age: 70 Year
  Sex: Male
  Weight: 57 kg

DRUGS (18)
  1. BLINDED ENALAPRIL [Suspect]
     Indication: CARDIAC FAILURE CHRONIC
     Dosage: DOUBLE BLINDED
     Route: 048
  2. BLINDED LCZ696 [Suspect]
     Indication: CARDIAC FAILURE CHRONIC
     Dosage: DOUBLE BLINDED
     Route: 048
  3. BLINDED NO TREATMENT RECEIVED [Suspect]
     Indication: CARDIAC FAILURE CHRONIC
     Dosage: DOUBLE BLINDED
     Route: 048
  4. FUROSEMIDE [Suspect]
     Indication: CARDIAC FAILURE CHRONIC
     Dosage: 40 MG, BID
  5. REQUIP [Suspect]
     Indication: PARKINSON^S DISEASE
     Dosage: 4 MG, QD
  6. AZILECT [Suspect]
     Indication: PARKINSON^S DISEASE
     Dosage: 1 MG, QD
  7. CARVEDILOL [Suspect]
     Indication: CARDIAC FAILURE CHRONIC
     Dosage: 6.25 MG, BID
  8. ATORVASTATIN [Concomitant]
     Indication: MYOCARDIAL ISCHAEMIA
     Dosage: 10 MG, QD
     Dates: start: 201207
  9. OMEPRAZOLE [Concomitant]
     Indication: GASTRIC ULCER
     Dosage: 20 MG, QD
  10. KARDEGIC [Concomitant]
     Dosage: 75 MG, QD
  11. EPLERENONE [Concomitant]
     Indication: CARDIAC FAILURE CHRONIC
     Dosage: 25 MG, QD
  12. LASILIX [Concomitant]
     Dosage: 40 MG, QD
  13. LASILIX [Concomitant]
     Dosage: UNK
  14. TAHOR [Concomitant]
     Dosage: 10 MG, QD
  15. ESOMEPRAZOLE [Concomitant]
     Dosage: 20 MG, QD
  16. INSPRA [Concomitant]
     Dosage: 25 MG, QD
  17. KREDEX [Concomitant]
     Dosage: 6.25 MG, BID
  18. KREDEX [Concomitant]
     Dosage: 3.24 MG, BID

REACTIONS (3)
  - Renal failure acute [Recovered/Resolved]
  - Orthostatic hypotension [Recovered/Resolved]
  - Rhabdomyolysis [Recovered/Resolved]
